FAERS Safety Report 9047025 (Version 1)
Quarter: 2013Q1

REPORT INFORMATION
  Report Type: Spontaneous
  Country: US (occurrence: None)
  Receive Date: 20130129
  Receipt Date: 20130129
  Transmission Date: 20140127
  Serious: Yes (Hospitalization)
  Sender: FDA-Public Use
  Company Number: None

PATIENT
  Age: 40 Year
  Sex: 0
  Weight: 63 kg

DRUGS (1)
  1. OXYTOCIN [Suspect]
     Dosage: 20 UNITS
     Route: 040

REACTIONS (1)
  - Drug ineffective [None]
